FAERS Safety Report 5678280-4 (Version None)
Quarter: 2008Q1

REPORT INFORMATION
  Report Type: 
  Country: None (occurrence: None)
  Receive Date: 20080319
  Receipt Date: 20080310
  Transmission Date: 20080703
  Serious: Yes (Other)
  Sender: FDA-Public Use
  Company Number: 2008AP000632

PATIENT
  Age: 35 Year
  Sex: Male

DRUGS (5)
  1. PAROXETINE HCL [Suspect]
     Indication: ANXIETY
     Dosage: 20 MG; 5 MG; PO; 20 MG; TAB; PO
     Dates: start: 20011101
  2. PAROXETINE HCL [Suspect]
     Indication: ANXIETY
     Dosage: 20 MG; 5 MG; PO; 20 MG; TAB; PO
     Dates: start: 20030206
  3. PAROXETINE HCL [Suspect]
     Indication: ANXIETY
     Dosage: 20 MG; 5 MG; PO; 20 MG; TAB; PO
     Dates: start: 20031204
  4. DIHYDROCODEINE COMPOUND [Suspect]
     Indication: PAIN
     Dates: start: 20011101
  5. ACETAMINOPHEN [Suspect]
     Indication: MUSCULOSKELETAL PAIN
     Dates: start: 20011101

REACTIONS (26)
  - ABNORMAL BEHAVIOUR [None]
  - AGGRESSION [None]
  - AGITATION [None]
  - ANXIETY [None]
  - DISTURBANCE IN ATTENTION [None]
  - DIZZINESS [None]
  - FATIGUE [None]
  - FLAT AFFECT [None]
  - HEADACHE [None]
  - HYPERHIDROSIS [None]
  - JUDGEMENT IMPAIRED [None]
  - LEGAL PROBLEM [None]
  - LETHARGY [None]
  - MEMORY IMPAIRMENT [None]
  - NAUSEA [None]
  - NIGHTMARE [None]
  - PARAESTHESIA [None]
  - PERSONALITY CHANGE [None]
  - POTENTIATING DRUG INTERACTION [None]
  - SLEEP DISORDER [None]
  - SUICIDAL IDEATION [None]
  - THEFT [None]
  - TREMOR [None]
  - VERTIGO [None]
  - VOMITING [None]
  - WITHDRAWAL SYNDROME [None]
